FAERS Safety Report 14314919 (Version 8)
Quarter: 2018Q3

REPORT INFORMATION
  Report Type: Spontaneous
  Country: GR (occurrence: GR)
  Receive Date: 20171221
  Receipt Date: 20180730
  Transmission Date: 20181010
  Serious: Yes (Other)
  Sender: FDA-Public Use
  Company Number: GR-ELI_LILLY_AND_COMPANY-GR201712006788

PATIENT
  Age: 62 Year
  Sex: Female

DRUGS (35)
  1. TRASTUZUMAB EMTANSINE [Suspect]
     Active Substance: ADO-TRASTUZUMAB EMTANSINE
     Indication: BREAST CANCER METASTATIC
     Dosage: 01 DF, CYCLICAL
     Route: 065
     Dates: start: 2009
  2. FULVESTRANT. [Suspect]
     Active Substance: FULVESTRANT
     Indication: BREAST CANCER METASTATIC
     Dosage: 01 DF, CYCLICAL
     Route: 030
     Dates: start: 2009
  3. FULVESTRANT. [Suspect]
     Active Substance: FULVESTRANT
     Indication: RECURRENT CANCER
     Dosage: 1 DF, DAILY
     Route: 030
     Dates: start: 2009
  4. TAMOXIFEN CITRATE. [Suspect]
     Active Substance: TAMOXIFEN CITRATE
     Indication: RECURRENT CANCER
     Dosage: 01 DF, CYCLICAL
     Route: 048
     Dates: start: 2009
  5. VINORELBINE [Suspect]
     Active Substance: VINORELBINE\VINORELBINE TARTRATE
     Indication: RECURRENT CANCER
     Dosage: 1 DF, DAILY
     Route: 065
     Dates: start: 2009
  6. PACLITAXEL. [Suspect]
     Active Substance: PACLITAXEL
     Indication: BREAST CANCER METASTATIC
     Dosage: 01 DF, CYCLICAL
     Route: 065
     Dates: start: 2006
  7. CARBOPLATIN. [Suspect]
     Active Substance: CARBOPLATIN
     Indication: BREAST CANCER METASTATIC
     Dosage: 01 DF, CYCLICAL
     Route: 065
     Dates: start: 2009
  8. CAPECITABINE. [Suspect]
     Active Substance: CAPECITABINE
     Indication: RECURRENT CANCER
     Dosage: 1 DF, DAILY
     Route: 065
     Dates: start: 2009
  9. LAPATINIB [Suspect]
     Active Substance: LAPATINIB
     Indication: BREAST CANCER METASTATIC
     Dosage: 1 DF, DAILY
     Route: 065
  10. LIPOSOMAL DOXORUBICIN HYDROCHLORIDE [Suspect]
     Active Substance: DOXORUBICIN HYDROCHLORIDE
     Indication: RECURRENT CANCER
     Dosage: 01 DF, CYCLICAL
     Route: 065
     Dates: start: 2009
  11. EXEMESTANE. [Suspect]
     Active Substance: EXEMESTANE
     Indication: BREAST CANCER METASTATIC
     Dosage: 01 DF, CYCLICAL
     Route: 065
     Dates: start: 2009
  12. EVEROLIMUS. [Suspect]
     Active Substance: EVEROLIMUS
     Indication: PROPHYLAXIS AGAINST TRANSPLANT REJECTION
  13. EVEROLIMUS. [Suspect]
     Active Substance: EVEROLIMUS
     Indication: BREAST CANCER
  14. GEMCITABINE HYDROCHLORIDE. [Suspect]
     Active Substance: GEMCITABINE HYDROCHLORIDE
     Indication: RECURRENT CANCER
  15. TRASTUZUMAB EMTANSINE [Suspect]
     Active Substance: ADO-TRASTUZUMAB EMTANSINE
     Indication: RECURRENT CANCER
     Dosage: 1 DF, DAILY
     Route: 065
     Dates: start: 2009
  16. LIPOSOMAL DOXORUBICIN HYDROCHLORIDE [Suspect]
     Active Substance: DOXORUBICIN HYDROCHLORIDE
     Indication: BREAST CANCER METASTATIC
  17. TAMOXIFEN CITRATE. [Suspect]
     Active Substance: TAMOXIFEN CITRATE
     Indication: BREAST CANCER METASTATIC
  18. EVEROLIMUS. [Suspect]
     Active Substance: EVEROLIMUS
     Indication: RECURRENT CANCER
  19. DOCETAXEL. [Suspect]
     Active Substance: DOCETAXEL
     Indication: BREAST CANCER METASTATIC
     Dosage: 01 DF, CYCLICAL
     Route: 065
     Dates: start: 2009
  20. DOCETAXEL. [Suspect]
     Active Substance: DOCETAXEL
     Indication: RECURRENT CANCER
  21. FULVESTRANT. [Suspect]
     Active Substance: FULVESTRANT
     Indication: METASTATIC MALIGNANT MELANOMA
  22. LAPATINIB [Suspect]
     Active Substance: LAPATINIB
     Indication: METASTATIC MALIGNANT MELANOMA
  23. ERIBULIN [Suspect]
     Active Substance: ERIBULIN
     Indication: RECURRENT CANCER
  24. VINORELBINE [Suspect]
     Active Substance: VINORELBINE\VINORELBINE TARTRATE
     Indication: BREAST CANCER METASTATIC
     Dosage: 01 DF, CYCLICAL
     Route: 065
     Dates: start: 2009
  25. GEMCITABINE HYDROCHLORIDE. [Suspect]
     Active Substance: GEMCITABINE HYDROCHLORIDE
     Indication: BREAST CANCER METASTATIC
     Dosage: 01 DF, CYCLICAL
     Route: 065
     Dates: start: 2009
  26. CARBOPLATIN. [Suspect]
     Active Substance: CARBOPLATIN
     Indication: RECURRENT CANCER
     Dosage: 1 DF, DAILY
     Route: 065
     Dates: start: 2009
  27. CAPECITABINE. [Suspect]
     Active Substance: CAPECITABINE
     Indication: BREAST CANCER METASTATIC
     Dosage: 1 DF, CYCLICAL
     Route: 065
     Dates: start: 2009
  28. METHOTREXATE SODIUM. [Suspect]
     Active Substance: METHOTREXATE SODIUM
     Indication: BREAST CANCER METASTATIC
     Dosage: 01 DF, CYCLICAL
     Route: 065
     Dates: start: 2006
  29. FLUOROURACIL. [Suspect]
     Active Substance: FLUOROURACIL
     Indication: BREAST CANCER METASTATIC
     Dosage: 1 DF, CYCLICAL
     Route: 065
     Dates: start: 2006
  30. EVEROLIMUS. [Suspect]
     Active Substance: EVEROLIMUS
     Indication: BREAST CANCER METASTATIC
     Dosage: 01 DF, CYCLICAL
     Route: 065
     Dates: start: 2009
  31. EPIRUBICIN [Suspect]
     Active Substance: EPIRUBICIN
     Indication: BREAST CANCER METASTATIC
     Dosage: 01 DF, CYCLICAL
     Route: 065
     Dates: start: 2006
  32. ENDOXAN                            /00021101/ [Suspect]
     Active Substance: CYCLOPHOSPHAMIDE
     Indication: BREAST CANCER METASTATIC
     Dosage: 01 DF, CYCLICAL
     Route: 065
     Dates: start: 2006
  33. LAPATINIB [Suspect]
     Active Substance: LAPATINIB
     Indication: RECURRENT CANCER
     Dosage: 01 DF, CYCLICAL
     Route: 065
     Dates: start: 2009
  34. ERIBULIN [Suspect]
     Active Substance: ERIBULIN
     Indication: BREAST CANCER METASTATIC
     Dosage: 01 DF, CYCLICAL
     Route: 042
     Dates: start: 2009
  35. EXEMESTANE. [Suspect]
     Active Substance: EXEMESTANE
     Indication: RECURRENT CANCER
     Dosage: 1 DF, DAILY
     Route: 065
     Dates: start: 2009

REACTIONS (6)
  - Metastases to lymph nodes [Unknown]
  - Metastases to lung [Unknown]
  - Metastases to bone [Unknown]
  - Skin mass [Unknown]
  - Malignant neoplasm progression [Unknown]
  - Metastases to skin [Unknown]

NARRATIVE: CASE EVENT DATE: 2009
